FAERS Safety Report 20810953 (Version 3)
Quarter: 2022Q3

REPORT INFORMATION
  Report Type: Spontaneous
  Country: AU (occurrence: AU)
  Receive Date: 20220510
  Receipt Date: 20220826
  Transmission Date: 20221027
  Serious: Yes (Hospitalization, Other)
  Sender: FDA-Public Use
  Company Number: AU-PFIZER INC-202200677069

PATIENT
  Age: 17 Year
  Sex: Male

DRUGS (4)
  1. GENTAMICIN SULFATE [Suspect]
     Active Substance: GENTAMICIN SULFATE
     Indication: Urinary tract infection
     Dosage: 160 MG, DAILY (IN TWO SITES ON ANTERIOR ASPECT OF THE THIGHS)
     Route: 030
  2. TRIMETHOPRIM [Suspect]
     Active Substance: TRIMETHOPRIM
     Indication: Urinary tract infection
     Dosage: 300 MG, DAILY
     Route: 048
  3. BOTOX [Suspect]
     Active Substance: ONABOTULINUMTOXINA
     Indication: Muscle spasticity
     Dosage: 100 IU, DILUTED WITH 2MLS OF STERILE NORMAL SALINE (IN 2 DIFFERENT SITES, 50 U=1ML SOLUTION EACH)
     Route: 030
  4. BOTOX [Suspect]
     Active Substance: ONABOTULINUMTOXINA
     Dosage: 100 IU, DILUTED IN 5MLS OF STERILE NORMAL SALINE IN EACH MUSCLE, IN ONE SITE
     Route: 030

REACTIONS (1)
  - Myositis [Recovering/Resolving]
